FAERS Safety Report 23072721 (Version 1)
Quarter: 2023Q4

REPORT INFORMATION
  Report Type: Spontaneous
  Country: US (occurrence: US)
  Receive Date: 20231017
  Receipt Date: 20231017
  Transmission Date: 20240109
  Serious: No
  Sender: FDA-Public Use
  Company Number: US-ABBVIE-5450135

PATIENT
  Sex: Male
  Weight: 77 kg

DRUGS (6)
  1. HUMIRA [Suspect]
     Active Substance: ADALIMUMAB
     Indication: Rheumatoid arthritis
     Dosage: FORM STRENGTH WAS 40 MILLIGRAM
     Route: 058
     Dates: start: 2018, end: 202308
  2. HUMIRA [Suspect]
     Active Substance: ADALIMUMAB
     Dosage: FORM STRENGTH WAS 40 MILLIGRAM
     Route: 058
     Dates: start: 202308
  3. FOLIC ACID [Concomitant]
     Active Substance: FOLIC ACID
     Indication: Bone disorder
  4. METHOTREXATE [Concomitant]
     Active Substance: METHOTREXATE
     Indication: Arthritis
     Dosage: FREQUENCY TEXT WAS 3 PIECES EVERY WEDNESDAY
  5. LOSARTAN POTASSIUM [Concomitant]
     Active Substance: LOSARTAN POTASSIUM
     Indication: Hypertension
  6. INFLUENZA VIRUS VACCINE [Suspect]
     Active Substance: INFLUENZA VIRUS VACCINE
     Indication: Product used for unknown indication
     Route: 065

REACTIONS (4)
  - Injection site pain [Recovered/Resolved]
  - Device issue [Unknown]
  - Vaccination site pain [Unknown]
  - Venous injury [Recovered/Resolved]

NARRATIVE: CASE EVENT DATE: 20180101
